FAERS Safety Report 4625469-9 (Version None)
Quarter: 2005Q2

REPORT INFORMATION
  Report Type: 
  Country: None (occurrence: None)
  Receive Date: 20050401
  Receipt Date: 20050211
  Transmission Date: 20051028
  Serious: Yes (Death, Hospitalization)
  Sender: FDA-Public Use
  Company Number: US-BOEHRINGER INGELHEIM PHARMMACEUTICALS, INC.-2005-BP-02195BP

PATIENT
  Age: 61 Year

DRUGS (6)
  1. SPIRIVA [Suspect]
     Indication: CHRONIC OBSTRUCTIVE PULMONARY DISEASE
     Route: 055
     Dates: start: 20050103, end: 20050107
  2. ZOCOR [Concomitant]
  3. DIOVAN [Concomitant]
  4. ZOLOFT [Concomitant]
  5. NEURONTIN [Concomitant]
  6. TRAMADOL [Concomitant]

REACTIONS (4)
  - CRYPTOGENIC ORGANIZING PNEUMONIA [None]
  - PNEUMOTHORAX [None]
  - PULMONARY FIBROSIS [None]
  - RESPIRATORY FAILURE [None]
